FAERS Safety Report 13463837 (Version 1)
Quarter: 2017Q2

REPORT INFORMATION
  Report Type: Spontaneous
  Country: US (occurrence: US)
  Receive Date: 20170420
  Receipt Date: 20170420
  Transmission Date: 20170830
  Serious: Yes (Other)
  Sender: FDA-Public Use
  Company Number: US-ROCHE-690637

PATIENT
  Age: 25 Year
  Sex: Female
  Weight: 52.2 kg

DRUGS (2)
  1. ACCUTANE [Suspect]
     Active Substance: ISOTRETINOIN
     Indication: ACNE
     Route: 048
     Dates: start: 19980630, end: 199812
  2. ORTHO TRI CYCLEN [Concomitant]
     Active Substance: ETHINYL ESTRADIOL\NORGESTIMATE
     Indication: CONTRACEPTION
     Route: 065

REACTIONS (4)
  - Inflammatory bowel disease [Unknown]
  - Depression [Unknown]
  - Colitis ulcerative [Unknown]
  - Lip dry [Unknown]

NARRATIVE: CASE EVENT DATE: 19980918
